FAERS Safety Report 8618895-4 (Version None)
Quarter: 2012Q3

REPORT INFORMATION
  Report Type: 
  Country: None (occurrence: None)
  Receive Date: 20120824
  Receipt Date: 20120817
  Transmission Date: 20120928
  Serious: Yes (Hospitalization)
  Sender: FDA-Public Use
  Company Number: US-JNJFOC-20120810207

PATIENT
  Sex: Male
  Weight: 37.2 kg

DRUGS (10)
  1. RISPERIDONE [Concomitant]
  2. MERCAPTOPURINE [Concomitant]
  3. REMICADE [Suspect]
     Indication: CROHN'S DISEASE
     Route: 042
  4. LORAZEPAM [Concomitant]
  5. PREDNISONE TAB [Concomitant]
  6. FERROUS SULFATE TAB [Concomitant]
  7. MULTI-VITAMINS [Concomitant]
  8. CETIRIZINE [Concomitant]
  9. OMEPRAZOLE [Concomitant]
  10. ONDANSETRON [Concomitant]

REACTIONS (2)
  - LIPASE INCREASED [None]
  - CROHN'S DISEASE [None]
